FAERS Safety Report 4365399-3 (Version None)
Quarter: 2004Q2

REPORT INFORMATION
  Report Type: 
  Country: None (occurrence: None)
  Receive Date: 20040525
  Receipt Date: 20040525
  Transmission Date: 20050107
  Serious: Yes (Life-Threatening, Hospitalization)
  Sender: FDA-Public Use
  Company Number: None

PATIENT
  Age: 63 Year
  Sex: Female
  Weight: 141 kg

DRUGS (22)
  1. BACTRIM DS [Suspect]
     Indication: ESCHERICHIA URINARY TRACT INFECTION
     Dosage: 1 BID X 14 DAYS
     Dates: start: 20040407, end: 20040421
  2. MS CONTIN [Suspect]
     Indication: ABDOMINAL PAIN
     Dosage: AB - 45 MG PO Q 12
     Route: 048
  3. MS CONTIN [Suspect]
     Indication: BACK PAIN
     Dosage: AB - 45 MG PO Q 12
     Route: 048
  4. SINGULAIR [Concomitant]
  5. NEURONTIN [Concomitant]
  6. ALDACTONE [Concomitant]
  7. ALTACE [Concomitant]
  8. AMIODARONE HCL [Concomitant]
  9. ADVAIR DISKUS 100/50 [Concomitant]
  10. ALBUTEROL NEB [Concomitant]
  11. VIT C [Concomitant]
  12. ASPIRIN [Concomitant]
  13. DIGOXIN [Concomitant]
  14. COLACE [Concomitant]
  15. IRON [Concomitant]
  16. NASAREL [Concomitant]
  17. REGLAN [Concomitant]
  18. PROTONIX [Concomitant]
  19. ZOLOFT [Concomitant]
  20. TRAZODONE HCL [Concomitant]
  21. SENNA [Concomitant]
  22. BUMEX [Concomitant]

REACTIONS (6)
  - CLUMSINESS [None]
  - CONFUSIONAL STATE [None]
  - DRUG TOXICITY [None]
  - MENTAL STATUS CHANGES [None]
  - RENAL FAILURE ACUTE [None]
  - RESPIRATORY ACIDOSIS [None]
